FAERS Safety Report 9899836 (Version 2)
Quarter: 2014Q1

REPORT INFORMATION
  Report Type: Spontaneous
  Country: US (occurrence: US)
  Receive Date: 20140214
  Receipt Date: 20140214
  Transmission Date: 20141002
  Serious: No
  Sender: FDA-Public Use
  Company Number: US-GILEAD-2011-0042133

PATIENT
  Age: 66 Year
  Sex: Female
  Weight: 49.44 kg

DRUGS (13)
  1. LETAIRIS [Suspect]
     Indication: PRODUCT USED FOR UNKNOWN INDICATION
     Route: 048
     Dates: start: 20080815
  2. ADCIRCA [Concomitant]
  3. ADVAIR [Concomitant]
  4. SPIRIVA [Concomitant]
  5. PLAVIX                             /01220701/ [Concomitant]
  6. OXYGEN [Concomitant]
  7. NASONEX [Concomitant]
  8. EVOXAC [Concomitant]
  9. RECLAST [Concomitant]
  10. ZEGERID                            /00661201/ [Concomitant]
  11. AMBIEN [Concomitant]
  12. CALCIUM +VIT D [Concomitant]
  13. NICOTINAMIDE/RETINOL/ASCORBIC ACID/PANTHENOL/ERGOCALCIFEROL/FOLIC ACID/RIBOFLAVIN/THIAMINE HYDROCHLO [Concomitant]

REACTIONS (3)
  - Weight decreased [Unknown]
  - Muscle atrophy [Unknown]
  - Anaemia [Unknown]
